FAERS Safety Report 4803493-0 (Version None)
Quarter: 2005Q4

REPORT INFORMATION
  Report Type: 
  Country: None (occurrence: None)
  Receive Date: 20051013
  Receipt Date: 20050930
  Transmission Date: 20060501
  Serious: Yes (Other)
  Sender: FDA-Public Use
  Company Number: 200512079BWH

PATIENT
  Age: 77 Year
  Sex: Male

DRUGS (1)
  1. CIPRO [Suspect]
     Indication: ESCHERICHIA URINARY TRACT INFECTION
     Dosage: 500 MG, BID, ORAL
     Route: 048
     Dates: end: 20050901

REACTIONS (4)
  - CLOSTRIDIUM COLITIS [None]
  - FALL [None]
  - SKIN LACERATION [None]
  - WEIGHT DECREASED [None]
